FAERS Safety Report 8790262 (Version 1)
Quarter: 2012Q4

REPORT INFORMATION
  Report Type: Report from Study
  Country: CA (occurrence: CA)
  Receive Date: 20120917
  Receipt Date: 20120917
  Transmission Date: 20130627
  Serious: Yes (Other)
  Sender: FDA-Public Use
  Company Number: CA-JNJFOC-20120903789

PATIENT
  Age: 44 Year
  Sex: Female
  Weight: 114.5 kg

DRUGS (11)
  1. REMICADE [Suspect]
     Indication: PSORIATIC ARTHROPATHY
     Route: 042
     Dates: start: 20120601
  2. TRAMACET [Concomitant]
     Route: 065
  3. METHOTREXATE [Concomitant]
     Route: 065
  4. ESTRADOT PATCH [Concomitant]
     Route: 065
  5. CLONIDINE [Concomitant]
     Route: 065
  6. CIPRALEX [Concomitant]
     Route: 065
  7. FOLIC ACID [Concomitant]
     Route: 065
  8. PANTOLOC [Concomitant]
     Route: 065
  9. ELAVIL [Concomitant]
     Dosage: 1-2 tablets
     Route: 065
  10. MILIZIDE [Concomitant]
     Route: 065
  11. CANDESARTAN [Concomitant]
     Route: 065

REACTIONS (2)
  - Haematoma [Unknown]
  - Infusion related reaction [Unknown]
